FAERS Safety Report 17426963 (Version 1)
Quarter: 2020Q1

REPORT INFORMATION
  Report Type: Other
  Country: CA (occurrence: CA)
  Receive Date: 20200218
  Receipt Date: 20200218
  Transmission Date: 20200409
  Serious: Yes (Hospitalization)
  Sender: FDA-Public Use
  Company Number: CA-ORCHID HEALTHCARE-2080574

PATIENT
  Age: 56 Year
  Sex: Female

DRUGS (15)
  1. MAGNESIUM GLUCOHEPTONATE [Concomitant]
     Route: 065
  2. ESOMEPRAZOLE. [Concomitant]
     Active Substance: ESOMEPRAZOLE MAGNESIUM
     Route: 065
  3. OXYCODONE [Concomitant]
     Active Substance: OXYCODONE
     Route: 065
  4. PREDNISONE. [Concomitant]
     Active Substance: PREDNISONE
     Route: 065
  5. DIVALPROEX SODIUM. [Suspect]
     Active Substance: DIVALPROEX SODIUM
     Indication: BIPOLAR DISORDER
     Route: 065
  6. PROGESTIN [Concomitant]
     Active Substance: PROGESTERONE
     Route: 065
  7. FORMOTEROL [Concomitant]
     Active Substance: FORMOTEROL
     Route: 065
  8. PROCYCLIDINE [Concomitant]
     Active Substance: PROCYCLIDINE
     Route: 065
  9. IRON SACCHAROSE [Concomitant]
     Route: 030
  10. ADALIMUMAB [Concomitant]
     Active Substance: ADALIMUMAB
     Route: 065
  11. OESTROGENS [Concomitant]
     Route: 065
  12. LEVOTHYROXINE. [Concomitant]
     Active Substance: LEVOTHYROXINE
     Route: 065
  13. ACETAMINOPHEN. [Concomitant]
     Active Substance: ACETAMINOPHEN
     Route: 065
  14. LOXAPINE. [Concomitant]
     Active Substance: LOXAPINE
     Route: 065
  15. HALOPERIDOL. [Concomitant]
     Active Substance: HALOPERIDOL
     Route: 065

REACTIONS (3)
  - Hyperlactacidaemia [Recovered/Resolved]
  - Septic shock [Recovered/Resolved]
  - Carnitine deficiency [Recovered/Resolved]
